FAERS Safety Report 23132304 (Version 1)
Quarter: 2023Q4

REPORT INFORMATION
  Report Type: Spontaneous
  Country: CY (occurrence: CY)
  Receive Date: 20231101
  Receipt Date: 20231101
  Transmission Date: 20240110
  Serious: Yes (Other)
  Sender: FDA-Public Use
  Company Number: CY-Merck Healthcare KGaA-2023483977

PATIENT
  Sex: Female

DRUGS (1)
  1. GLUCOPHAGE [Suspect]
     Active Substance: METFORMIN HYDROCHLORIDE
     Indication: Insulin resistance

REACTIONS (4)
  - Weight decreased [Unknown]
  - Cyst [Unknown]
  - Ill-defined disorder [Recovered/Resolved]
  - Maternal exposure during pregnancy [Unknown]
